FAERS Safety Report 7723264-5 (Version None)
Quarter: 2011Q3

REPORT INFORMATION
  Report Type: 
  Country: None (occurrence: None)
  Receive Date: 20110901
  Receipt Date: 20110826
  Transmission Date: 20111222
  Serious: Yes (Hospitalization)
  Sender: FDA-Public Use
  Company Number: ES-PFIZER INC-2011198670

PATIENT
  Age: 72 Year
  Sex: Male

DRUGS (6)
  1. FERRO-GRADUMET [Concomitant]
     Dosage: 525 MG, 1X/DAY
     Route: 048
     Dates: start: 20080301
  2. OMEPRAZOLE [Concomitant]
     Dosage: 20 MG, 1X/DAY
     Route: 048
     Dates: start: 20080101
  3. LYRICA [Suspect]
     Indication: AXONAL NEUROPATHY
     Dosage: 75 MG, 1X/DAY
     Route: 048
     Dates: start: 20100218, end: 20100224
  4. PLAVIX [Concomitant]
     Dosage: 75 MG, 1X/DAY
     Route: 048
  5. LYRICA [Interacting]
     Dosage: 150 MG, 1X/DAY
     Route: 048
     Dates: start: 20100225, end: 20100302
  6. AMITRIPTYLINE HCL [Interacting]
     Indication: AXONAL NEUROPATHY
     Dosage: 50 MG, 1X/DAY
     Route: 048
     Dates: start: 20091201

REACTIONS (6)
  - SOMNOLENCE [None]
  - DRUG INTERACTION [None]
  - BLOOD CREATININE INCREASED [None]
  - ASTHENIA [None]
  - DISORIENTATION [None]
  - DEHYDRATION [None]
